FAERS Safety Report 4719219-5 (Version None)
Quarter: 2005Q3

REPORT INFORMATION
  Report Type: 
  Country: None (occurrence: None)
  Receive Date: 20050718
  Receipt Date: 20050314
  Transmission Date: 20060218
  Serious: Yes (Life-Threatening)
  Sender: FDA-Public Use
  Company Number: PHEH2005US00591

PATIENT
  Age: 73 Year
  Sex: Female
  Weight: 89.8 kg

DRUGS (4)
  1. LOTENSIN HCT [Suspect]
     Dosage: 10 MG BENAZ/12.5 MG HCTZ QD, ORAL; 20 MG BENAZ/12.5 MG HCTZ
     Route: 048
     Dates: start: 20041122
  2. LOTENSIN HCT [Suspect]
     Dosage: 10 MG BENAZ/12.5 MG HCTZ QD, ORAL; 20 MG BENAZ/12.5 MG HCTZ
     Route: 048
     Dates: start: 20041203
  3. LOTREL [Suspect]
     Indication: HYPERTENSION
     Dosage: 3 MG AMLOD/20 MG BENAZ QD,
  4. PREMARIN [Concomitant]

REACTIONS (5)
  - ANGIONEUROTIC OEDEMA [None]
  - DYSPNOEA [None]
  - LOCAL SWELLING [None]
  - SWELLING FACE [None]
  - SWOLLEN TONGUE [None]
